FAERS Safety Report 6534216-5 (Version None)
Quarter: 2010Q1

REPORT INFORMATION
  Report Type: 
  Country: None (occurrence: None)
  Receive Date: 20100112
  Receipt Date: 20091231
  Transmission Date: 20100710
  Serious: Yes (Hospitalization)
  Sender: FDA-Public Use
  Company Number: PHHY2009IE57803

PATIENT
  Sex: Male

DRUGS (4)
  1. CLOZARIL [Suspect]
     Indication: SCHIZOPHRENIA
     Dosage: UNK
     Dates: start: 20060724
  2. LITHIUM CARBONATE [Concomitant]
  3. RISPERIDONE [Concomitant]
  4. CARBIMAZOLE [Concomitant]

REACTIONS (2)
  - CONSCIOUSNESS FLUCTUATING [None]
  - HYPERTHYROIDISM [None]
